FAERS Safety Report 18192506 (Version 2)
Quarter: 2020Q3

REPORT INFORMATION
  Report Type: Spontaneous
  Country: US (occurrence: US)
  Receive Date: 20200825
  Receipt Date: 20200908
  Transmission Date: 20201103
  Serious: No
  Sender: FDA-Public Use
  Company Number: US-AMGEN-USASP2020131235

PATIENT
  Age: 74 Year
  Sex: Female

DRUGS (1)
  1. PROLIA [Suspect]
     Active Substance: DENOSUMAB
     Indication: OSTEOPOROSIS
     Dosage: UNK
     Route: 065
     Dates: start: 2018

REACTIONS (7)
  - Product storage error [Unknown]
  - Back pain [Unknown]
  - Pain in jaw [Unknown]
  - Arthralgia [Unknown]
  - Arthritis [Unknown]
  - Device use error [Unknown]
  - Pain [Unknown]

NARRATIVE: CASE EVENT DATE: 202008
